FAERS Safety Report 23822624 (Version 1)
Quarter: 2024Q2

REPORT INFORMATION
  Report Type: Spontaneous
  Country: HR (occurrence: None)
  Receive Date: 20240506
  Receipt Date: 20240506
  Transmission Date: 20240716
  Serious: Yes (Other)
  Sender: FDA-Public Use
  Company Number: 2024A106134

PATIENT
  Sex: Male
  Weight: 100 kg

DRUGS (2)
  1. QUETIAPINE [Suspect]
     Active Substance: QUETIAPINE
     Indication: Suicidal ideation
     Dosage: 60-80 TBL QUETIAPINE OF 25 MG
     Route: 048
     Dates: start: 20240319, end: 20240319
  2. NORMABEL [Suspect]
     Active Substance: DIAZEPAM
     Indication: Suicidal ideation
     Dosage: 600.0MG UNKNOWN
     Dates: start: 20240319, end: 20240319

REACTIONS (4)
  - Suicide attempt [Unknown]
  - Tachycardia [Unknown]
  - Somnolence [Unknown]
  - Intentional overdose [Unknown]

NARRATIVE: CASE EVENT DATE: 20240319
